FAERS Safety Report 5016139-6 (Version None)
Quarter: 2006Q2

REPORT INFORMATION
  Report Type: 
  Country: None (occurrence: None)
  Receive Date: 20060414
  Receipt Date: 20060207
  Transmission Date: 20061013
  Serious: No
  Sender: FDA-Public Use
  Company Number: 2006SP000659

PATIENT
  Age: 83 Year
  Sex: Female
  Weight: 54.4316 kg

DRUGS (5)
  1. LUNESTA [Suspect]
     Indication: INSOMNIA
     Dosage: 2 MG;HS;ORAL
     Route: 048
     Dates: start: 20060101, end: 20060101
  2. DIOVANE [Concomitant]
  3. MULTIVITAMIN [Concomitant]
  4. GLUCOSAMINE W/ CHONDROITIN [Concomitant]
  5. ASCORBIC ACID [Concomitant]

REACTIONS (3)
  - ASTHENIA [None]
  - DYSGEUSIA [None]
  - MIDDLE INSOMNIA [None]
